FAERS Safety Report 5350980-5 (Version None)
Quarter: 2007Q2

REPORT INFORMATION
  Report Type: 
  Country: None (occurrence: None)
  Receive Date: 20070608
  Receipt Date: 20070604
  Transmission Date: 20071010
  Serious: Yes (Hospitalization, Other)
  Sender: FDA-Public Use
  Company Number: JP-BRISTOL-MYERS SQUIBB COMPANY-13794938

PATIENT
  Age: 64 Year
  Sex: Male

DRUGS (23)
  1. ABATACEPT [Suspect]
     Indication: RHEUMATOID ARTHRITIS
     Route: 041
     Dates: start: 20070510, end: 20070510
  2. MUCOSOLVAN [Concomitant]
     Indication: PRODUCTIVE COUGH
     Route: 048
     Dates: start: 20070516
  3. RESPLEN [Concomitant]
     Indication: COUGH
     Route: 048
     Dates: start: 20070522
  4. MELOXICAM [Concomitant]
     Indication: RHEUMATOID ARTHRITIS
     Route: 048
  5. VOLTAREN [Concomitant]
     Indication: RHEUMATOID ARTHRITIS
     Route: 054
  6. ISONIAZID [Concomitant]
     Indication: PROPHYLAXIS
     Route: 048
  7. PYDOXAL [Concomitant]
     Indication: PROPHYLAXIS
     Route: 048
  8. PREDNISOLONE [Concomitant]
     Indication: RHEUMATOID ARTHRITIS
     Route: 048
  9. ATELEC [Concomitant]
     Indication: HYPERTENSION
     Route: 048
  10. GASTROM [Concomitant]
     Indication: GASTRITIS PROPHYLAXIS
     Route: 048
  11. ALFAROL [Concomitant]
     Indication: OSTEOPOROSIS
     Route: 048
  12. ASPARA-CA [Concomitant]
     Indication: OSTEOPOROSIS
     Route: 048
  13. LAC-B [Concomitant]
     Indication: FLATULENCE
     Route: 048
  14. GASMOTIN [Concomitant]
     Indication: GASTRITIS PROPHYLAXIS
  15. CEREKINON [Concomitant]
     Indication: GASTRITIS PROPHYLAXIS
     Route: 048
  16. FLURBIPROFEN [Concomitant]
     Indication: RHEUMATOID ARTHRITIS
     Route: 061
  17. MIKELAN [Concomitant]
     Indication: GLAUCOMA
     Route: 047
  18. XALATAN [Concomitant]
     Indication: GLAUCOMA
     Route: 047
  19. MUCOSOLVAN [Concomitant]
     Indication: SPUTUM RETENTION
     Route: 048
  20. GASTER D [Concomitant]
     Indication: GASTRITIS PROPHYLAXIS
     Route: 048
  21. LOXONIN [Concomitant]
     Indication: RHEUMATOID ARTHRITIS
     Route: 048
  22. LEVOFLOXACIN [Concomitant]
     Indication: EYE DISCHARGE
     Route: 047
  23. BISOLVON [Concomitant]
     Indication: SPUTUM RETENTION
     Route: 055

REACTIONS (2)
  - INTERSTITIAL LUNG DISEASE [None]
  - LUNG NEOPLASM MALIGNANT [None]
